FAERS Safety Report 23421676 (Version 2)
Quarter: 2024Q1

REPORT INFORMATION
  Report Type: Report from Study
  Country: US (occurrence: US)
  Receive Date: 20240119
  Receipt Date: 20240201
  Transmission Date: 20240410
  Serious: Yes (Other)
  Sender: FDA-Public Use
  Company Number: US-BAYER-2024A009782

PATIENT
  Age: 52 Year
  Sex: Female
  Weight: 80.272 kg

DRUGS (10)
  1. ADEMPAS [Suspect]
     Active Substance: RIOCIGUAT
     Indication: Pulmonary arterial hypertension
     Dosage: 0.5 MG, TID
     Route: 048
     Dates: start: 20231219
  2. ADEMPAS [Suspect]
     Active Substance: RIOCIGUAT
     Indication: Pulmonary arterial hypertension
     Dosage: 1 MG, TID
  3. OMEPRAZOLE [Concomitant]
     Active Substance: OMEPRAZOLE
  4. DIGITEK [Concomitant]
     Active Substance: DIGOXIN
  5. POTASSIUM CHLORIDE [Concomitant]
     Active Substance: POTASSIUM CHLORIDE
  6. GABAPENTIN [Concomitant]
     Active Substance: GABAPENTIN
  7. OMEGA-3 FATTY ACIDS [Concomitant]
     Active Substance: OMEGA-3 FATTY ACIDS
  8. SPIRONOLACTONE [Concomitant]
     Active Substance: SPIRONOLACTONE
  9. FUROSEMIDE [Concomitant]
     Active Substance: FUROSEMIDE
  10. AMBRISENTAN [Concomitant]
     Active Substance: AMBRISENTAN

REACTIONS (8)
  - Loss of consciousness [Not Recovered/Not Resolved]
  - Epistaxis [Not Recovered/Not Resolved]
  - Nausea [Not Recovered/Not Resolved]
  - Dizziness [None]
  - Head injury [None]
  - Feeling abnormal [None]
  - Illness [None]
  - Headache [None]
